FAERS Safety Report 17163024 (Version 2)
Quarter: 2021Q1

REPORT INFORMATION
  Report Type: Report from Study
  Country: CA (occurrence: CA)
  Receive Date: 20191217
  Receipt Date: 20210305
  Transmission Date: 20210419
  Serious: Yes (Hospitalization)
  Sender: FDA-Public Use
  Company Number: CA-HORIZON-RAV-0373-2019

PATIENT
  Sex: Female
  Weight: 16.5 kg

DRUGS (8)
  1. ARGININE [Concomitant]
     Active Substance: ARGININE
  2. RAVICTI [Suspect]
     Active Substance: GLYCEROL PHENYLBUTYRATE
     Indication: UREA CYCLE DISORDER
     Dosage: 5.5 ML DAILY (DIVIDED AS: 1.5 ML, 1.5 ML, 1.5 ML, 1 ML)
     Dates: start: 20181025, end: 20200526
  3. FERRUM SOLUTION [Concomitant]
  4. BACTRIM [Concomitant]
     Active Substance: SULFAMETHOXAZOLE\TRIMETHOPRIM
     Indication: URINARY TRACT INFECTION
  5. RAVICTI [Suspect]
     Active Substance: GLYCEROL PHENYLBUTYRATE
     Dosage: 2 ML, QID
     Route: 048
     Dates: start: 20210226
  6. RAVICTI [Suspect]
     Active Substance: GLYCEROL PHENYLBUTYRATE
     Dosage: 1.8 MG, QID
     Route: 048
     Dates: end: 202102
  7. RAVICTI [Suspect]
     Active Substance: GLYCEROL PHENYLBUTYRATE
     Dosage: 1.5 MG, QID
     Route: 048
     Dates: start: 20200527, end: 20200606
  8. RANITIDINE. [Concomitant]
     Active Substance: RANITIDINE

REACTIONS (1)
  - Pneumonia [Not Recovered/Not Resolved]
